FAERS Safety Report 8385259 (Version 2)
Quarter: 2015Q1

REPORT INFORMATION
  Report Type: Report from Study
  Country: US (occurrence: US)
  Receive Date: 20120202
  Receipt Date: 20150304
  Transmission Date: 20150721
  Serious: Yes (Death)
  Sender: FDA-Public Use
  Company Number: US-ROCHE-1035858

PATIENT
  Age: 67 Year
  Sex: Female
  Weight: 83.99 kg

DRUGS (14)
  1. AVASTIN [Suspect]
     Active Substance: BEVACIZUMAB
     Indication: BREAST CANCER FEMALE
     Route: 042
     Dates: start: 20070110
  2. ALTACE [Concomitant]
     Active Substance: RAMIPRIL
  3. CODEINE [Concomitant]
     Active Substance: CODEINE
  4. ATENOLOL. [Concomitant]
     Active Substance: ATENOLOL
  5. AMOXYCILLIN [Concomitant]
     Active Substance: AMOXICILLIN
  6. TAGAMET [Concomitant]
     Active Substance: CIMETIDINE
     Route: 042
  7. BENADRYL [Concomitant]
     Active Substance: DIPHENHYDRAMINE HYDROCHLORIDE
     Route: 048
  8. KYTRIL [Concomitant]
     Active Substance: GRANISETRON HYDROCHLORIDE
     Route: 042
  9. ASPIRIN. [Concomitant]
     Active Substance: ASPIRIN
  10. LEVAQUIN [Concomitant]
     Active Substance: LEVOFLOXACIN
     Route: 065
  11. NEUPOGEN [Suspect]
     Active Substance: FILGRASTIM
     Indication: PRODUCT USED FOR UNKNOWN INDICATION
     Route: 065
  12. VICODIN [Suspect]
     Active Substance: ACETAMINOPHEN\HYDROCODONE BITARTRATE
     Indication: PRODUCT USED FOR UNKNOWN INDICATION
     Route: 065
  13. GEMZAR [Concomitant]
     Active Substance: GEMCITABINE HYDROCHLORIDE
     Route: 042
     Dates: start: 20070110
  14. DECADRON [Concomitant]
     Active Substance: DEXAMETHASONE
     Route: 042

REACTIONS (22)
  - Death [Fatal]
  - Chest pain [Unknown]
  - Asthenia [Unknown]
  - Decreased appetite [Unknown]
  - Anaemia [Unknown]
  - Upper respiratory tract infection [Unknown]
  - Facial pain [Unknown]
  - Computerised tomogram abdomen abnormal [Unknown]
  - Wound secretion [Recovered/Resolved]
  - Fatigue [Unknown]
  - Feeling abnormal [Unknown]
  - Bone pain [Unknown]
  - Pruritus [Unknown]
  - Cough [Unknown]
  - Cystitis [Unknown]
  - Constipation [Unknown]
  - Insomnia [Unknown]
  - Pain [Unknown]
  - Depression [Unknown]
  - Nausea [Unknown]
  - Malaise [Unknown]
  - Pyrexia [Unknown]

NARRATIVE: CASE EVENT DATE: 20071206
